FAERS Safety Report 15417246 (Version 1)
Quarter: 2018Q3

REPORT INFORMATION
  Report Type: Spontaneous
  Country: US (occurrence: US)
  Receive Date: 20180924
  Receipt Date: 20180924
  Transmission Date: 20181010
  Serious: Yes (Hospitalization)
  Sender: FDA-Public Use
  Company Number: US-HORIZON-PRE-0422-2018

PATIENT
  Age: 18 Year
  Sex: Male

DRUGS (5)
  1. PREDNISONE. [Suspect]
     Active Substance: PREDNISONE
     Indication: DUCHENNE MUSCULAR DYSTROPHY
     Dosage: 25 MG DAILY
  2. LISINOPRIL. [Concomitant]
     Active Substance: LISINOPRIL
     Indication: DUCHENNE MUSCULAR DYSTROPHY
     Dosage: 5 MG DAILY
  3. TESTOSTERONE. [Concomitant]
     Active Substance: TESTOSTERONE
     Indication: DUCHENNE MUSCULAR DYSTROPHY
     Dosage: 100 MG EVERY OTHER WEEK
     Route: 030
  4. ALENDRONATE [Concomitant]
     Active Substance: ALENDRONATE SODIUM
     Indication: DUCHENNE MUSCULAR DYSTROPHY
     Dosage: 10 MG WEEKLY
  5. METOPROLOL SUCCINATE. [Concomitant]
     Active Substance: METOPROLOL SUCCINATE
     Indication: DUCHENNE MUSCULAR DYSTROPHY
     Dosage: 25 MG DAILY

REACTIONS (3)
  - Disease recurrence [Recovered/Resolved]
  - Drug ineffective for unapproved indication [Recovered/Resolved]
  - Myocarditis [Recovered/Resolved]
